FAERS Safety Report 8388067-X (Version None)
Quarter: 2012Q2

REPORT INFORMATION
  Report Type: 
  Country: None (occurrence: None)
  Receive Date: 20120525
  Receipt Date: 20120516
  Transmission Date: 20120825
  Serious: Yes (Hospitalization, Other)
  Sender: FDA-Public Use
  Company Number: DE-VERTEX PHARMACEUTICALS INC.-000000000000000312

PATIENT
  Sex: Female

DRUGS (6)
  1. RIBAVIRIN [Concomitant]
     Indication: HEPATITIS C
     Dates: start: 20111101, end: 20120321
  2. LEVOTHYROXINE SODIUM [Concomitant]
     Route: 048
  3. PEGASYS [Concomitant]
     Indication: HEPATITIS C
     Dates: start: 20111101, end: 20120321
  4. INCIVO (TELAPREVIR) [Suspect]
     Indication: HEPATITIS C
     Dosage: DOSAGE FORM: TABLET
     Route: 048
     Dates: start: 20111115, end: 20120127
  5. PANTOPRAZOLE [Concomitant]
  6. FENISTIL [Concomitant]

REACTIONS (4)
  - DRUG RASH WITH EOSINOPHILIA AND SYSTEMIC SYMPTOMS [None]
  - HYPOKALAEMIA [None]
  - DIARRHOEA [None]
  - MEDICATION ERROR [None]
